FAERS Safety Report 23180787 (Version 2)
Quarter: 2023Q4

REPORT INFORMATION
  Report Type: Spontaneous
  Country: IT (occurrence: IT)
  Receive Date: 20231114
  Receipt Date: 20231120
  Transmission Date: 20240109
  Serious: Yes (Other)
  Sender: FDA-Public Use
  Company Number: None

PATIENT
  Age: 89 Year
  Sex: Female

DRUGS (5)
  1. EDOXABAN TOSYLATE [Suspect]
     Active Substance: EDOXABAN TOSYLATE
     Indication: Atrial fibrillation
     Dosage: 30 MG, QD,(LIXIANA28CPR RIV 30MG - 1 CP/DAY FOR MODERATE RENAL IMPAIRMENT (CRCL 50 ML/MIN)
     Route: 048
     Dates: start: 20210126, end: 202106
  2. SINEMET [Concomitant]
     Active Substance: CARBIDOPA\LEVODOPA
     Indication: Parkinson^s disease
     Dosage: 0.5 DF, BID,(SINEMET50CPR 100MG+25MG- ? CP TWICE DAILY)
     Route: 048
     Dates: start: 2021
  3. OLMESARTAN E IDROCLOROTIAZIDE EG [Concomitant]
     Indication: Hypertensive heart disease
     Dosage: 1 DF, QD,(OLMESARTAN+ID EG 20MG+25MG 28CPR - 1 CP/DAY)
     Route: 048
     Dates: start: 2021
  4. SERTRALINA DOC [Concomitant]
     Indication: Major depression
     Dosage: 1 DF, QD,(SERTRALINE DOC 100MG 30CPR - 1 CP/DAY)
     Route: 048
     Dates: start: 2021
  5. BISOPROLOL FUMARATE [Concomitant]
     Active Substance: BISOPROLOL FUMARATE
     Indication: Hypertensive heart disease
     Dosage: 1 DF, QD,(BISOPROLOL SDZ 2.5MG 28CPR - 1 CP/DAY)
     Route: 048
     Dates: start: 2021

REACTIONS (2)
  - Renal failure [Recovering/Resolving]
  - Glomerular filtration rate decreased [Recovering/Resolving]

NARRATIVE: CASE EVENT DATE: 20210501
